FAERS Safety Report 6520732-9 (Version None)
Quarter: 2009Q4

REPORT INFORMATION
  Report Type: 
  Country: None (occurrence: None)
  Receive Date: 20091229
  Receipt Date: 20091221
  Transmission Date: 20100525
  Serious: Yes (Hospitalization)
  Sender: FDA-Public Use
  Company Number: GXKR2009ES13710

PATIENT
  Age: 2 Month
  Sex: Male

DRUGS (3)
  1. HYDROCHLOROTHIAZIDE [Suspect]
     Indication: NEPHROGENIC DIABETES INSIPIDUS
     Dosage: 2 MG/KG
     Route: 048
  2. HYDROCHLOROTHIAZIDE [Suspect]
     Dosage: 1 MG/KG, BID
     Route: 048
  3. HYDROCHLOROTHIAZIDE [Suspect]
     Dosage: 0.5 MG/KG, BID PROGRESSIVELY INCREASED MAXIMUM TO 4 MG/KG/DAY
     Route: 048

REACTIONS (8)
  - ASTHENIA [None]
  - BRAIN OEDEMA [None]
  - DYSPNOEA [None]
  - HYPERHIDROSIS [None]
  - HYPOTHERMIA [None]
  - LETHARGY [None]
  - PALLOR [None]
  - WATER INTOXICATION [None]
